FAERS Safety Report 5443358-7 (Version None)
Quarter: 2007Q3

REPORT INFORMATION
  Report Type: 
  Country: None (occurrence: None)
  Receive Date: 20070905
  Receipt Date: 20070830
  Transmission Date: 20080115
  Serious: Yes (Other)
  Sender: FDA-Public Use
  Company Number: A0677751A

PATIENT
  Sex: Female

DRUGS (1)
  1. BECONASE [Suspect]
     Dosage: 2SPR SINGLE DOSE
     Route: 045

REACTIONS (3)
  - CHOKING [None]
  - PHARMACEUTICAL PRODUCT COMPLAINT [None]
  - RETCHING [None]
